FAERS Safety Report 4472804-0 (Version None)
Quarter: 2004Q4

REPORT INFORMATION
  Report Type: 
  Country: None (occurrence: None)
  Receive Date: 20041013
  Receipt Date: 20030428
  Transmission Date: 20050328
  Serious: Yes (Hospitalization, Other)
  Sender: FDA-Public Use
  Company Number: 200310483JP

PATIENT
  Age: 63 Year
  Sex: Male
  Weight: 55.4 kg

DRUGS (6)
  1. AMARYL [Suspect]
     Route: 048
     Dates: end: 20030425
  2. DEPAKENE [Concomitant]
     Route: 048
     Dates: start: 20030320, end: 20030425
  3. SYMMETREL [Concomitant]
     Route: 048
     Dates: start: 20030313, end: 20030421
  4. BASEN [Concomitant]
     Route: 048
     Dates: start: 20030404, end: 20030425
  5. MELLARIL [Concomitant]
     Route: 048
     Dates: start: 20030402, end: 20030421
  6. LENDORMIN [Concomitant]
     Route: 048
     Dates: start: 20030314, end: 20030424

REACTIONS (11)
  - ALANINE AMINOTRANSFERASE INCREASED [None]
  - ASPARTATE AMINOTRANSFERASE INCREASED [None]
  - BLOOD ALKALINE PHOSPHATASE INCREASED [None]
  - BLOOD LACTATE DEHYDROGENASE INCREASED [None]
  - CONVULSION [None]
  - DEPRESSED LEVEL OF CONSCIOUSNESS [None]
  - GAMMA-GLUTAMYLTRANSFERASE INCREASED [None]
  - HEPATIC FUNCTION ABNORMAL [None]
  - LOSS OF CONSCIOUSNESS [None]
  - PNEUMONIA [None]
  - PYREXIA [None]
